FAERS Safety Report 6490059-2 (Version None)
Quarter: 2009Q4

REPORT INFORMATION
  Report Type: 
  Country: None (occurrence: None)
  Receive Date: 20091211
  Receipt Date: 20081110
  Transmission Date: 20100525
  Serious: No
  Sender: FDA-Public Use
  Company Number: A0755788A

PATIENT
  Age: 46 Year
  Sex: Male

DRUGS (2)
  1. FLONASE [Suspect]
     Dosage: 100MCG TWICE PER DAY
     Route: 045
     Dates: start: 20050101
  2. NO CONCURRENT MEDICATION [Concomitant]

REACTIONS (7)
  - BACK PAIN [None]
  - CHILLS [None]
  - FATIGUE [None]
  - HEADACHE [None]
  - MALAISE [None]
  - OVERDOSE [None]
  - PAIN [None]
